FAERS Safety Report 4761062-5 (Version None)
Quarter: 2005Q3

REPORT INFORMATION
  Report Type: 
  Country: None (occurrence: None)
  Receive Date: 20050901
  Receipt Date: 20050819
  Transmission Date: 20060218
  Serious: Yes (Other)
  Sender: FDA-Public Use
  Company Number: 12180

PATIENT
  Age: 48 Year
  Sex: Male

DRUGS (1)
  1. DOPAMINE [Suspect]

REACTIONS (3)
  - ELECTROCARDIOGRAM ST SEGMENT ELEVATION [None]
  - SHOCK [None]
  - VASOCONSTRICTION [None]
